FAERS Safety Report 9177050 (Version 1)
Quarter: 2013Q1

REPORT INFORMATION
  Report Type: Spontaneous
  Country: US (occurrence: None)
  Receive Date: 20130320
  Receipt Date: 20130320
  Transmission Date: 20140127
  Serious: Yes (Other)
  Sender: FDA-Public Use
  Company Number: None

PATIENT
  Age: 68 Year
  Sex: Female
  Weight: 74.84 kg

DRUGS (1)
  1. AZITHROMYCIN [Suspect]
     Dosage: 2 TABS DAY ONE  1 TAB DAYS 2-5
     Dates: start: 20130312, end: 20130315

REACTIONS (3)
  - Diarrhoea [None]
  - Vomiting [None]
  - Abdominal pain upper [None]
